FAERS Safety Report 4361416-5 (Version None)
Quarter: 2004Q2

REPORT INFORMATION
  Report Type: 
  Country: None (occurrence: None)
  Receive Date: 20040517
  Receipt Date: 20040430
  Transmission Date: 20050107
  Serious: Yes (Other)
  Sender: FDA-Public Use
  Company Number: ZANA001286

PATIENT
  Age: 29 Year
  Sex: Female

DRUGS (3)
  1. ZANAFLEX [Suspect]
     Indication: MUSCLE SPASTICITY
     Dosage: 8 MG DAILY ORAL
     Route: 048
     Dates: start: 20040201
  2. ACETAMINOPHEN [Concomitant]
  3. CITALOPRAM [Concomitant]

REACTIONS (2)
  - RASH MACULO-PAPULAR [None]
  - VIRAL RASH [None]
